FAERS Safety Report 8885909 (Version 1)
Quarter: 2012Q4

REPORT INFORMATION
  Report Type: 
  Country: IT (occurrence: IT)
  Receive Date: 20121102
  Receipt Date: 20121102
  Transmission Date: 20130627
  Serious: Yes (Other)
  Sender: FDA-Public Use
  Company Number: IT-JNJFOC-20121013795

PATIENT
  Age: 19 Year
  Sex: Female

DRUGS (1)
  1. ECONAZOLE [Suspect]
     Indication: OTITIS EXTERNA
     Route: 061
     Dates: start: 20121015, end: 20121015

REACTIONS (3)
  - Suffocation feeling [Recovering/Resolving]
  - Hypersensitivity [Recovering/Resolving]
  - Pruritus [Recovering/Resolving]
